FAERS Safety Report 4605919-4 (Version None)
Quarter: 2005Q1

REPORT INFORMATION
  Report Type: 
  Country: None (occurrence: None)
  Receive Date: 20050116
  Receipt Date: 20041101
  Transmission Date: 20050727
  Serious: Yes (Hospitalization)
  Sender: FDA-Public Use
  Company Number: PHEH2004US11798

PATIENT
  Age: 50 Year
  Sex: Male

DRUGS (2)
  1. GLEEVEC [Suspect]
     Indication: LEUKAEMIA
     Dosage: (SEE IMAGE)
     Dates: start: 20010401, end: 20040901
  2. GLEEVEC [Suspect]
     Indication: LEUKAEMIA
     Dosage: (SEE IMAGE)
     Dates: start: 20041001

REACTIONS (2)
  - MALIGNANT NEOPLASM PROGRESSION [None]
  - WHITE BLOOD CELL COUNT INCREASED [None]
